FAERS Safety Report 7461640-9 (Version None)
Quarter: 2011Q2

REPORT INFORMATION
  Report Type: 
  Country: None (occurrence: None)
  Receive Date: 20110427
  Receipt Date: 20110419
  Transmission Date: 20111010
  Serious: Yes (Death)
  Sender: FDA-Public Use
  Company Number: 2011S1000135

PATIENT
  Age: 29 Year
  Sex: Male

DRUGS (1)
  1. INOMAX [Suspect]
     Indication: ACUTE RESPIRATORY DISTRESS SYNDROME
     Dosage: 40 PPM;CONT;INH
     Route: 055
     Dates: start: 20110213, end: 20110214

REACTIONS (2)
  - NO THERAPEUTIC RESPONSE [None]
  - CARDIO-RESPIRATORY ARREST [None]
